FAERS Safety Report 13442435 (Version 1)
Quarter: 2017Q2

REPORT INFORMATION
  Report Type: Spontaneous
  Country: US (occurrence: US)
  Receive Date: 20170414
  Receipt Date: 20170414
  Transmission Date: 20170830
  Serious: No
  Sender: FDA-Public Use
  Company Number: None

PATIENT
  Age: 69 Year
  Sex: Female
  Weight: 49.9 kg

DRUGS (9)
  1. HYDROCOD/ACETAM 5-325MG TAB MAL [Suspect]
     Active Substance: ACETAMINOPHEN\HYDROCODONE
     Indication: HIP ARTHROPLASTY
     Route: 048
     Dates: start: 20170305, end: 20170311
  2. MULTI-VITAMIN [Concomitant]
     Active Substance: .ALPHA.-TOCOPHEROL ACETATE, DL-\ASCORBIC ACID\CYANOCOBALAMIN\FLUORIDE ION\FOLIC ACID\NIACIN\PYRIDOXINE\RIBOFLAVIN\THIAMINE\VITAMIN A\VITAMIN D
  3. VITAMIN C [Concomitant]
     Active Substance: ASCORBIC ACID
  4. ARMOUR THYROID [Concomitant]
     Active Substance: THYROID, PORCINE
  5. CURCUMIN [Concomitant]
     Active Substance: CURCUMIN
  6. B-12 CHEWABLES [Concomitant]
  7. MEGACAL-CA WITH VIT D [Concomitant]
     Active Substance: CALCIUM\CHOLECALCIFEROL
  8. HYDROCOD/ACETAM 5-325MG TAB MAL [Suspect]
     Active Substance: ACETAMINOPHEN\HYDROCODONE
     Indication: FEMUR FRACTURE
     Route: 048
     Dates: start: 20170305, end: 20170311
  9. VITAMIN E [Concomitant]
     Active Substance: .ALPHA.-TOCOPHEROL

REACTIONS (7)
  - Mouth ulceration [None]
  - Erythema [None]
  - Skin exfoliation [None]
  - Hallucination [None]
  - Pruritus [None]
  - Swollen tongue [None]
  - Tongue erythema [None]

NARRATIVE: CASE EVENT DATE: 20170305
